FAERS Safety Report 8647522 (Version 6)
Quarter: 2013Q4

REPORT INFORMATION
  Report Type: Spontaneous
  Country: TR (occurrence: TR)
  Receive Date: 20120703
  Receipt Date: 20131225
  Transmission Date: 20140711
  Serious: Yes (Hospitalization, Other)
  Sender: FDA-Public Use
  Company Number: TR-AMGEN-TURSP2012039468

PATIENT
  Age: 25 Year
  Sex: Female

DRUGS (5)
  1. ENBREL [Suspect]
     Indication: ANKYLOSING SPONDYLITIS
     Dosage: 50 MG, WEEKLY
     Route: 058
     Dates: start: 20111226, end: 20120703
  2. ENBREL [Suspect]
     Dosage: 25 MG, 2X/WEEK
     Route: 058
     Dates: start: 20120703, end: 201211
  3. ENBREL [Suspect]
     Dosage: 25 MG, 2X/WEEK
     Route: 058
  4. INH [Suspect]
     Indication: TUBERCULOSIS
     Dosage: 300 MG, 1X/DAY
     Route: 048
     Dates: start: 201303, end: 201304
  5. PREDNOL                            /00049601/ [Concomitant]
     Indication: PAIN
     Dosage: UNK, 2X/DAY FOR 3-4 DAYS
     Dates: start: 201310

REACTIONS (13)
  - Asthenia [Not Recovered/Not Resolved]
  - Dyspnoea [Recovering/Resolving]
  - Mobility decreased [Recovered/Resolved]
  - Pain [Recovered/Resolved]
  - Fear [Recovered/Resolved]
  - Local swelling [Recovered/Resolved]
  - Pain in extremity [Not Recovered/Not Resolved]
  - Back pain [Not Recovered/Not Resolved]
  - Arthralgia [Not Recovered/Not Resolved]
  - Gait disturbance [Not Recovered/Not Resolved]
  - Chest pain [Recovering/Resolving]
  - Tuberculosis [Not Recovered/Not Resolved]
  - Injection site pain [Recovered/Resolved]
